FAERS Safety Report 4340106-9 (Version None)
Quarter: 2004Q2

REPORT INFORMATION
  Report Type: 
  Country: None (occurrence: None)
  Receive Date: 20040414
  Receipt Date: 20040329
  Transmission Date: 20050107
  Serious: Yes (Other)
  Sender: FDA-Public Use
  Company Number: A03200400979

PATIENT
  Age: 52 Year
  Sex: Female

DRUGS (3)
  1. DEMEROL [Suspect]
     Indication: COLONOSCOPY
     Dosage: 50 MG ONCE UNKNOWN
     Route: 065
  2. LEXAPRO [Suspect]
     Dosage: 5 MG QD - ORAL
     Route: 048
  3. VERSED [Suspect]
     Indication: COLONOSCOPY
     Dosage: 7 MG ONCE UNKNOWN
     Route: 065

REACTIONS (4)
  - DRUG INTERACTION [None]
  - PAIN [None]
  - PROCEDURAL COMPLICATION [None]
  - THERAPY NON-RESPONDER [None]
